FAERS Safety Report 5957002-3 (Version None)
Quarter: 2008Q4

REPORT INFORMATION
  Report Type: 
  Country: None (occurrence: None)
  Receive Date: 20081118
  Receipt Date: 20080815
  Transmission Date: 20090506
  Serious: No
  Sender: FDA-Public Use
  Company Number: A0742847A

PATIENT
  Age: 49 Year
  Sex: Male

DRUGS (7)
  1. COREG CR [Suspect]
     Indication: HYPERTENSION
     Dosage: 80MG PER DAY
     Route: 048
     Dates: start: 20080808, end: 20080808
  2. EXFORGE [Concomitant]
  3. POTASSIUM CHLORIDE [Concomitant]
  4. ATIVAN [Concomitant]
  5. CATAPRES [Concomitant]
  6. LORTAB [Concomitant]
  7. PROMETHAZINE [Concomitant]

REACTIONS (2)
  - DRUG DISPENSING ERROR [None]
  - PRODUCT QUALITY ISSUE [None]
